FAERS Safety Report 4553926-2 (Version None)
Quarter: 2005Q1

REPORT INFORMATION
  Report Type: 
  Country: None (occurrence: None)
  Receive Date: 20050118
  Receipt Date: 20050106
  Transmission Date: 20050727
  Serious: Yes (Death, Other)
  Sender: FDA-Public Use
  Company Number: JP-MERCK-0501USA00916

PATIENT
  Age: 66 Year
  Sex: Male

DRUGS (2)
  1. PEPCID [Suspect]
     Route: 048
  2. [THERAPY UNSPECIFIED] [Suspect]
     Route: 048

REACTIONS (2)
  - DISSEMINATED INTRAVASCULAR COAGULATION [None]
  - TOXIC EPIDERMAL NECROLYSIS [None]
